FAERS Safety Report 5391755-0 (Version None)
Quarter: 2007Q3

REPORT INFORMATION
  Report Type: 
  Country: None (occurrence: None)
  Receive Date: 20070717
  Receipt Date: 20070704
  Transmission Date: 20080115
  Serious: Yes (Other)
  Sender: FDA-Public Use
  Company Number: GXKR2007GB05803

PATIENT
  Age: 28 Year
  Sex: Female

DRUGS (9)
  1. SALBUTAMOL (NGX) (SALBUTAMOL) UNKNOWN [Suspect]
     Indication: ASTHMA
     Dosage: 5 MG X 12 , INHALATION
     Route: 055
  2. TERBUTALINE SULFATE [Concomitant]
  3. FLUTICASONE PROPIONATE [Concomitant]
  4. FORMOTEROL FUMARATE (FORMOTEROL FUMARATE) INHALER [Concomitant]
  5. PREDNISOLONE [Concomitant]
  6. VERAPAMIL [Concomitant]
  7. MAGNESIUM SULFATE [Concomitant]
  8. AMINOPHYLLIN [Concomitant]
  9. HYDROCORTISONE [Concomitant]

REACTIONS (3)
  - ABDOMINAL PAIN [None]
  - ABDOMINAL RIGIDITY [None]
  - HYPERLACTACIDAEMIA [None]
